FAERS Safety Report 17137367 (Version 1)
Quarter: 2019Q4

REPORT INFORMATION
  Report Type: Spontaneous
  Country: CZ (occurrence: CZ)
  Receive Date: 20191210
  Receipt Date: 20191210
  Transmission Date: 20200122
  Serious: Yes (Other)
  Sender: FDA-Public Use
  Company Number: CZ-TEVA-2019-CZ-1150270

PATIENT
  Age: 57 Year
  Sex: Male

DRUGS (12)
  1. FOLINIC ACID [Suspect]
     Active Substance: LEUCOVORIN
     Route: 042
     Dates: start: 2019, end: 201908
  2. PANILUMUMAB [Concomitant]
  3. DOCETAXEL. [Concomitant]
     Active Substance: DOCETAXEL
     Dosage: 300-100
     Dates: start: 20180725
  4. IRINOTECAN [Concomitant]
     Active Substance: IRINOTECAN
  5. CARBOPLATIN. [Concomitant]
     Active Substance: CARBOPLATIN
     Dosage: 300-100
     Dates: start: 20180725
  6. 5-FLUOROURACIL [Concomitant]
     Active Substance: FLUOROURACIL
  7. G-CSF [Concomitant]
     Active Substance: GRANULOCYTE COLONY-STIMULATING FACTOR NOS
  8. OXALIPLATIN. [Suspect]
     Active Substance: OXALIPLATIN
     Indication: COLORECTAL CANCER METASTATIC
     Route: 042
     Dates: start: 20171207, end: 2019
  9. FOLINIC ACID [Suspect]
     Active Substance: LEUCOVORIN
     Indication: COLORECTAL CANCER METASTATIC
     Route: 042
     Dates: start: 20171207, end: 2019
  10. CARBOPLATIN. [Concomitant]
     Active Substance: CARBOPLATIN
     Dosage: 300-100
     Dates: start: 20180802
  11. OXALIPLATIN. [Suspect]
     Active Substance: OXALIPLATIN
     Route: 042
     Dates: start: 2019, end: 201908
  12. DOCETAXEL. [Concomitant]
     Active Substance: DOCETAXEL
     Dosage: 300-100
     Dates: start: 20180822

REACTIONS (3)
  - Haematotoxicity [Recovered/Resolved]
  - Dermatitis acneiform [Recovered/Resolved]
  - Neurotoxicity [Recovered/Resolved]

NARRATIVE: CASE EVENT DATE: 2018
